FAERS Safety Report 18586679 (Version 2)
Quarter: 2021Q3

REPORT INFORMATION
  Report Type: Report from Study
  Country: BR (occurrence: BR)
  Receive Date: 20201207
  Receipt Date: 20210730
  Transmission Date: 20211014
  Serious: Yes (Hospitalization, Other)
  Sender: FDA-Public Use
  Company Number: BR-JNJFOC-20201153804

PATIENT
  Sex: Male

DRUGS (10)
  1. FRISIUM [Concomitant]
     Active Substance: CLOBAZAM
  2. BROMOPRIDE [Concomitant]
     Active Substance: BROMOPRIDE
  3. BUSCOPAN [Concomitant]
     Active Substance: BUTYLSCOPOLAMINE BROMIDE
  4. MIGLUSTAT. [Suspect]
     Active Substance: MIGLUSTAT
     Indication: NIEMANN-PICK DISEASE
     Route: 048
     Dates: start: 20091201
  5. DOMPERIDONE [Concomitant]
     Active Substance: DOMPERIDONE
  6. AKINETON [Concomitant]
     Active Substance: BIPERIDEN HYDROCHLORIDE
  7. SEROQUEL [Concomitant]
     Active Substance: QUETIAPINE FUMARATE
  8. TRILEPTAL [Concomitant]
     Active Substance: OXCARBAZEPINE
  9. KEPPRA [Concomitant]
     Active Substance: LEVETIRACETAM
  10. SIMETHICONE (DIMETHICONE) [Concomitant]
     Active Substance: DIMETHICONE

REACTIONS (5)
  - Urinary tract infection [Recovered/Resolved]
  - Pyrexia [Unknown]
  - Product dose omission issue [Unknown]
  - Abdominal distension [Recovered/Resolved]
  - Bedridden [Unknown]
